FAERS Safety Report 7679913-3 (Version None)
Quarter: 2011Q3

REPORT INFORMATION
  Report Type: 
  Country: None (occurrence: None)
  Receive Date: 20110812
  Receipt Date: 20110804
  Transmission Date: 20111222
  Serious: Yes (Other)
  Sender: FDA-Public Use
  Company Number: DE-PFIZER INC-2011160474

PATIENT

DRUGS (1)
  1. TORISEL [Suspect]
     Indication: RENAL CELL CARCINOMA
     Dosage: 25 MG, WEEKLY

REACTIONS (4)
  - DISEASE PROGRESSION [None]
  - PNEUMONIA FUNGAL [None]
  - RENAL CELL CARCINOMA [None]
  - PNEUMONIA [None]
